FAERS Safety Report 7052295-6 (Version None)
Quarter: 2010Q4

REPORT INFORMATION
  Report Type: 
  Country: None (occurrence: None)
  Receive Date: 20101019
  Receipt Date: 20101013
  Transmission Date: 20110411
  Serious: Yes (Death, Hospitalization, Other)
  Sender: FDA-Public Use
  Company Number: US-ELI_LILLY_AND_COMPANY-US200906005598

PATIENT
  Sex: Female
  Weight: 95.238 kg

DRUGS (18)
  1. BYETTA [Suspect]
     Dosage: UNK, UNK
     Dates: start: 20040601
  2. BYETTA [Suspect]
     Dosage: 5 UG, UNK
     Dates: end: 20060719
  3. PERCODAN                           /00090001/ [Concomitant]
  4. INSULIN LISPRO [Concomitant]
     Indication: TYPE 2 DIABETES MELLITUS
     Dosage: UNK, AS NEEDED
  5. OXYCODONE AND ASPIRIN [Concomitant]
     Indication: PAIN
  6. ZELNORM [Concomitant]
     Indication: CONSTIPATION
  7. AVANDIA [Concomitant]
     Indication: DIABETES MELLITUS
  8. BISACODYL [Concomitant]
     Indication: CONSTIPATION
  9. XALATAN [Concomitant]
     Indication: INTRAOCULAR PRESSURE INCREASED
  10. METOCLOPRAMIDE [Concomitant]
     Indication: NAUSEA
  11. AMBIEN [Concomitant]
     Indication: INSOMNIA
  12. DIOVAN [Concomitant]
     Indication: HYPERTENSION
  13. LYRICA [Concomitant]
     Indication: NEURALGIA
  14. ALPRAZOLAM [Concomitant]
     Indication: ANXIETY
  15. LIPITOR [Concomitant]
     Indication: HYPERCHOLESTEROLAEMIA
  16. ATENOLOL [Concomitant]
     Indication: HYPERTENSION
  17. NOVOLOG [Concomitant]
     Indication: DIABETES MELLITUS
  18. METHADONE [Concomitant]

REACTIONS (9)
  - BLOOD CHOLESTEROL INCREASED [None]
  - BLOOD TRIGLYCERIDES INCREASED [None]
  - DEATH [None]
  - OFF LABEL USE [None]
  - PANCREATITIS ACUTE [None]
  - PANCREATITIS CHRONIC [None]
  - PANCYTOPENIA [None]
  - RENAL FAILURE ACUTE [None]
  - SEPSIS [None]
